FAERS Safety Report 5271629-6 (Version None)
Quarter: 2007Q1

REPORT INFORMATION
  Report Type: 
  Country: None (occurrence: None)
  Receive Date: 20070316
  Receipt Date: 20070308
  Transmission Date: 20070707
  Serious: Yes (Hospitalization)
  Sender: FDA-Public Use
  Company Number: 2007BI005518

PATIENT
  Sex: Female
  Weight: 48.0813 kg

DRUGS (1)
  1. NATALIZUMAB [Suspect]
     Indication: MULTIPLE SCLEROSIS
     Dosage: 300 MG; QM; IV
     Route: 042
     Dates: start: 20070111

REACTIONS (3)
  - HEADACHE [None]
  - INTERVERTEBRAL DISC DISORDER [None]
  - STRESS [None]
